FAERS Safety Report 6475777-4 (Version None)
Quarter: 2009Q4

REPORT INFORMATION
  Report Type: 
  Country: None (occurrence: None)
  Receive Date: 20091204
  Receipt Date: 20091125
  Transmission Date: 20100525
  Serious: Yes (Congenital Anomaly)
  Sender: FDA-Public Use
  Company Number: US-ABBOTT-09P-163-0610711-00

PATIENT

DRUGS (1)
  1. DEPAKOTE ER [Suspect]
     Indication: DRUG EXPOSURE DURING PREGNANCY
     Dosage: UNKNOWN
     Route: 064

REACTIONS (2)
  - DRUG EXPOSURE DURING PREGNANCY [None]
  - NEURAL TUBE DEFECT [None]
